FAERS Safety Report 23494122 (Version 2)
Quarter: 2024Q1

REPORT INFORMATION
  Report Type: Spontaneous
  Country: IN (occurrence: IN)
  Receive Date: 20240207
  Receipt Date: 20240220
  Transmission Date: 20240410
  Serious: Yes (Other)
  Sender: FDA-Public Use
  Company Number: IN-MYLANLABS-2024M1010572

PATIENT
  Age: 63 Year
  Sex: Female

DRUGS (1)
  1. METHOTREXATE [Suspect]
     Active Substance: METHOTREXATE
     Indication: Psoriasis
     Dosage: 5 MILLIGRAM, QOD
     Route: 065

REACTIONS (6)
  - Pancytopenia [Unknown]
  - Toxicity to various agents [Recovered/Resolved]
  - Mucosal inflammation [Unknown]
  - Ulcer [Unknown]
  - Mouth ulceration [Unknown]
  - Accidental overdose [Unknown]
